FAERS Safety Report 4319353-8 (Version None)
Quarter: 2004Q1

REPORT INFORMATION
  Report Type: 
  Country: None (occurrence: None)
  Receive Date: 20040319
  Receipt Date: 20040308
  Transmission Date: 20041129
  Serious: Yes (Hospitalization)
  Sender: FDA-Public Use
  Company Number: PHNU2004DE01216

PATIENT
  Sex: Female

DRUGS (1)
  1. CLOZARIL [Suspect]
     Dosage: UNKNOWN
     Route: 048
     Dates: end: 20030101

REACTIONS (4)
  - HYPERTENSION [None]
  - NOREPINEPHRINE INCREASED [None]
  - PSEUDOPHAEOCHROMOCYTOMA [None]
  - TACHYCARDIA [None]
